FAERS Safety Report 13654139 (Version 1)
Quarter: 2017Q2

REPORT INFORMATION
  Report Type: Report from Study
  Country: FR (occurrence: FR)
  Receive Date: 20170614
  Receipt Date: 20170614
  Transmission Date: 20170830
  Serious: Yes (Other)
  Sender: FDA-Public Use
  Company Number: FR-GILEAD-2017-0277517

PATIENT
  Sex: Male

DRUGS (4)
  1. IDELALISIB [Suspect]
     Active Substance: IDELALISIB
     Dosage: 100 MG, BID
     Route: 048
     Dates: start: 20160906, end: 20160920
  2. IDELALISIB [Suspect]
     Active Substance: IDELALISIB
     Indication: B-CELL LYMPHOMA
     Dosage: 150 MG, BID
     Route: 048
     Dates: start: 201607, end: 20160808
  3. ZELITREX [Concomitant]
     Active Substance: VALACYCLOVIR HYDROCHLORIDE
  4. PENTACARINAT [Concomitant]
     Active Substance: PENTAMIDINE ISETHIONATE

REACTIONS (3)
  - Rash [Unknown]
  - Acute kidney injury [Unknown]
  - Neutropenia [Unknown]
